FAERS Safety Report 15357711 (Version 6)
Quarter: 2019Q1

REPORT INFORMATION
  Report Type: Report from Study
  Country: US (occurrence: US)
  Receive Date: 20180906
  Receipt Date: 20190204
  Transmission Date: 20190417
  Serious: Yes (Hospitalization, Disabling)
  Sender: FDA-Public Use
  Company Number: US-ACTELION-A-NJ2018-178182

PATIENT
  Age: 70 Year
  Sex: Female

DRUGS (20)
  1. OPSUMIT [Suspect]
     Active Substance: MACITENTAN
     Indication: PULMONARY ARTERIAL HYPERTENSION
     Dosage: 10 MG, QD
     Route: 048
     Dates: start: 20140320
  2. DIPHENOXYLATE/ATROPINE [Concomitant]
     Active Substance: ATROPINE\DIPHENOXYLATE
     Dosage: 2.5/ 0.025 MG, 2 TABLETS 4 TIMES DAILY PRN
     Dates: start: 20120201
  3. METOLAZONE. [Concomitant]
     Active Substance: METOLAZONE
     Dosage: 2.5 MG, QD
     Dates: start: 20180709
  4. TREPROSTINIL. [Concomitant]
     Active Substance: TREPROSTINIL
     Dosage: 65 NG/KG, PER MIN
     Dates: start: 20111026
  5. TEMAZEPAM. [Concomitant]
     Active Substance: TEMAZEPAM
     Dosage: 15 MG, 1-2 CAPSULES EVERY EVENING
     Dates: start: 20120131
  6. ADCIRCA [Concomitant]
     Active Substance: TADALAFIL
     Dosage: 20 MG, BID
     Dates: start: 20111026
  7. ACETAMINOPHEN. [Concomitant]
     Active Substance: ACETAMINOPHEN
     Dosage: 1000 MG, QD
     Dates: start: 20120830
  8. FUROSEMIDE. [Concomitant]
     Active Substance: FUROSEMIDE
     Dosage: 80 MG, BID
     Dates: start: 20180205
  9. SPIRONOLACTONE. [Concomitant]
     Active Substance: SPIRONOLACTONE
     Dosage: 50 UNK, BID
     Dates: start: 20180409
  10. WARFARIN [Concomitant]
     Active Substance: WARFARIN
     Dosage: 2.5 MG, BID
     Dates: start: 20181027
  11. CIALIS [Concomitant]
     Active Substance: TADALAFIL
  12. ADCIRCA [Concomitant]
     Active Substance: TADALAFIL
     Dosage: UNK
     Dates: start: 201107
  13. FAMOTIDINE. [Concomitant]
     Active Substance: FAMOTIDINE
     Dosage: 20 MG, BID
     Dates: start: 20130415
  14. POTASSIUM CHLORIDE. [Concomitant]
     Active Substance: POTASSIUM CHLORIDE
     Dosage: 20 MEQ, 3 TABS IN AM AND 4 IN PM
     Dates: start: 20180523
  15. VERSED [Concomitant]
     Active Substance: MIDAZOLAM HYDROCHLORIDE
  16. REMODULIN [Suspect]
     Active Substance: TREPROSTINIL
     Indication: PRODUCT USED FOR UNKNOWN INDICATION
     Dosage: UNK
     Route: 065
     Dates: start: 201107
  17. CETIRIZINE [Concomitant]
     Active Substance: CETIRIZINE HYDROCHLORIDE
     Dosage: 10 MG, QD
     Dates: start: 20111026
  18. DOXEPIN [Concomitant]
     Active Substance: DOXEPIN
     Dosage: 50 MG, 2 CAPSULES AT BEDTIME
     Dates: start: 20111026
  19. ERGOCALCIFEROL. [Concomitant]
     Active Substance: ERGOCALCIFEROL
     Dosage: 50000 U, Q1MONTH
     Dates: start: 20170705
  20. FENTANYL. [Concomitant]
     Active Substance: FENTANYL

REACTIONS (19)
  - Dyspnoea [Not Recovered/Not Resolved]
  - General physical health deterioration [Unknown]
  - Hospitalisation [Unknown]
  - Haemorrhoid operation [Recovered/Resolved]
  - Fatigue [Not Recovered/Not Resolved]
  - Adverse reaction [Recovering/Resolving]
  - Rash [Unknown]
  - Headache [Recovered/Resolved]
  - Pyrexia [Unknown]
  - Personality change [Not Recovered/Not Resolved]
  - Memory impairment [Unknown]
  - Infection [Unknown]
  - Diarrhoea [Not Recovered/Not Resolved]
  - Pain in extremity [Unknown]
  - Feeling abnormal [Unknown]
  - Malaise [Unknown]
  - Mood altered [Not Recovered/Not Resolved]
  - Weight decreased [Not Recovered/Not Resolved]
  - Irritability [Not Recovered/Not Resolved]

NARRATIVE: CASE EVENT DATE: 201807
